FAERS Safety Report 26062276 (Version 1)
Quarter: 2025Q4

REPORT INFORMATION
  Report Type: Report from Study
  Country: US (occurrence: US)
  Receive Date: 20251119
  Receipt Date: 20251119
  Transmission Date: 20260118
  Serious: No
  Sender: ACADIA PHARMACEUTICALS
  Company Number: US-ACADIA PHARMACEUTICALS INC.-ACA-2025-PIM-012239

PATIENT
  Sex: Male

DRUGS (12)
  1. NUPLAZID [Suspect]
     Active Substance: PIMAVANSERIN TARTRATE
     Indication: Parkinson^s disease
     Dosage: 34 MILLIGRAM, QD
     Route: 048
     Dates: start: 20240416
  2. AZILECT [Concomitant]
     Active Substance: RASAGILINE MESYLATE
  3. VITAMIN B12 [Concomitant]
     Active Substance: CYANOCOBALAMIN
     Dosage: SUBLINGUAL
  4. CARBIDOPA LEVODOPA [Concomitant]
     Active Substance: CARBIDOPA\LEVODOPA
  5. ENTACAPONE [Concomitant]
     Active Substance: ENTACAPONE
  6. FERROUS SULFATE [Concomitant]
     Active Substance: FERROUS SULFATE
  7. GOCOVRI [Concomitant]
     Active Substance: AMANTADINE
  8. MAGNESIUM [Concomitant]
     Active Substance: MAGNESIUM
  9. RASAGILINE MESYLATE [Concomitant]
     Active Substance: RASAGILINE MESYLATE
  10. VITAMIN B COMPLEX [Concomitant]
     Active Substance: CYANOCOBALAMIN\DEXPANTHENOL\NIACINAMIDE\PYRIDOXINE HYDROCHLORIDE\RIBOFLAVIN 5^-PHOSPHATE SODIUM\THIA
  11. VITAMIN E [Concomitant]
     Active Substance: .ALPHA.-TOCOPHEROL
     Dosage: 100UNIT
  12. ZINC [Concomitant]
     Active Substance: ZINC

REACTIONS (2)
  - Sleep disorder [Unknown]
  - Fatigue [Unknown]
